FAERS Safety Report 18813617 (Version 3)
Quarter: 2021Q4

REPORT INFORMATION
  Report Type: Spontaneous
  Country: US (occurrence: US)
  Receive Date: 20210201
  Receipt Date: 20211011
  Transmission Date: 20220303
  Serious: Yes (Other)
  Sender: FDA-Public Use
  Company Number: US-SPECGX-T202100154

PATIENT
  Sex: Male
  Weight: 91 kg

DRUGS (6)
  1. ACETAMINOPHEN\HYDROCODONE [Suspect]
     Active Substance: ACETAMINOPHEN\HYDROCODONE
     Indication: Pain
     Dosage: 10/325 MG, FOUR TIMES A DAY
     Route: 048
  2. FENTANYL TRANSDERMAL SYSTEM [Suspect]
     Active Substance: FENTANYL
     Indication: Pain
     Dosage: UNK
     Route: 062
  3. FENTANYL TRANSDERMAL SYSTEM [Suspect]
     Active Substance: FENTANYL
     Indication: Pain
     Dosage: UNK
     Route: 062
  4. FENTANYL TRANSDERMAL SYSTEM [Suspect]
     Active Substance: FENTANYL
     Indication: Pain
     Dosage: UNK, EVERY 72 HOURS
     Route: 062
  5. FENTANYL TRANSDERMAL SYSTEM [Suspect]
     Active Substance: FENTANYL
     Dosage: UNK, EVERY 72 HOURS
     Route: 062
  6. PANTOPRAZOLE [Concomitant]
     Active Substance: PANTOPRAZOLE
     Indication: Reflux gastritis
     Dosage: UNK
     Route: 065

REACTIONS (11)
  - Urinary tract infection [Recovering/Resolving]
  - Weight increased [Unknown]
  - Bedridden [Unknown]
  - Colitis [Recovering/Resolving]
  - Micturition urgency [Recovering/Resolving]
  - Renal pain [Not Recovered/Not Resolved]
  - Gluten sensitivity [Unknown]
  - Cardiac murmur [Unknown]
  - Insomnia [Unknown]
  - Abdominal pain upper [Unknown]
  - Therapeutic product effect incomplete [Unknown]
